FAERS Safety Report 16414786 (Version 4)
Quarter: 2019Q3

REPORT INFORMATION
  Report Type: Spontaneous
  Country: US (occurrence: US)
  Receive Date: 20190611
  Receipt Date: 20190916
  Transmission Date: 20191004
  Serious: No
  Sender: FDA-Public Use
  Company Number: US-PFIZER INC-2019227435

PATIENT
  Age: 61 Year
  Sex: Female

DRUGS (1)
  1. LYRICA [Suspect]
     Active Substance: PREGABALIN
     Dosage: 225 MG, 2X/DAY
     Route: 048

REACTIONS (6)
  - Feeling abnormal [Unknown]
  - Post-traumatic stress disorder [Unknown]
  - Sleep terror [Unknown]
  - Condition aggravated [Unknown]
  - Malaise [Unknown]
  - Pyrexia [Unknown]
